FAERS Safety Report 20554440 (Version 2)
Quarter: 2022Q1

REPORT INFORMATION
  Report Type: Spontaneous
  Country: US (occurrence: None)
  Receive Date: 20220304
  Receipt Date: 20220318
  Transmission Date: 20220423
  Serious: No
  Sender: FDA-Public Use
  Company Number: 2022A061227

PATIENT
  Age: 733 Month
  Sex: Female
  Weight: 90.7 kg

DRUGS (4)
  1. SYMBICORT [Suspect]
     Active Substance: BUDESONIDE\FORMOTEROL FUMARATE DIHYDRATE
     Indication: Asthma
     Dosage: 80/4.5 UG INTERMITTENT
     Route: 055
     Dates: start: 202104
  2. BUDESONIDE\FORMOTEROL\GLYCOPYRRONIUM [Suspect]
     Active Substance: BUDESONIDE\FORMOTEROL\GLYCOPYRRONIUM
     Indication: Post-acute COVID-19 syndrome
     Route: 055
  3. VENTOLIN [Concomitant]
     Active Substance: ALBUTEROL SULFATE
  4. BUDESONIDE [Concomitant]
     Active Substance: BUDESONIDE

REACTIONS (10)
  - COVID-19 [Unknown]
  - Joint injury [Unknown]
  - Nasal septum deviation [Not Recovered/Not Resolved]
  - Asthma [Unknown]
  - Limb injury [Unknown]
  - Dyspnoea [Unknown]
  - Peak expiratory flow rate decreased [Unknown]
  - Dysphonia [Unknown]
  - Drug ineffective [Unknown]
  - Device malfunction [Unknown]

NARRATIVE: CASE EVENT DATE: 20210901
